FAERS Safety Report 4939040-2 (Version None)
Quarter: 2006Q1

REPORT INFORMATION
  Report Type: 
  Country: None (occurrence: None)
  Receive Date: 20060306
  Receipt Date: 20060228
  Transmission Date: 20060701
  Serious: Yes (Death, Hospitalization)
  Sender: FDA-Public Use
  Company Number: REM_00185_2006

PATIENT
  Age: 53 Year
  Sex: Female
  Weight: 68.5 kg

DRUGS (8)
  1. REMODULIN [Suspect]
     Indication: PULMONARY HYPERTENSION
     Dosage: 20 NG/KG MIN CONTINUOUS SC
     Route: 058
     Dates: start: 20060126
  2. PLAQUENIL [Concomitant]
  3. PREDNISONE [Concomitant]
  4. LEVOTHYROXINE SODIUM [Concomitant]
  5. TOPOL XL [Concomitant]
  6. PROTONIX [Concomitant]
  7. NAPROSYN [Concomitant]
  8. FOSAMAX [Concomitant]

REACTIONS (8)
  - CARDIAC ARREST [None]
  - CEREBRAL ARTERY EMBOLISM [None]
  - CEREBROVASCULAR ACCIDENT [None]
  - FATIGUE [None]
  - INFUSION SITE ERYTHEMA [None]
  - NAUSEA [None]
  - SEPSIS [None]
  - VOMITING [None]
